FAERS Safety Report 5091680-9 (Version None)
Quarter: 2006Q3

REPORT INFORMATION
  Report Type: 
  Country: None (occurrence: None)
  Receive Date: 20060829
  Receipt Date: 20060725
  Transmission Date: 20061208
  Serious: Yes (Hospitalization)
  Sender: FDA-Public Use
  Company Number: FR-AVENTIS-200612611FR

PATIENT
  Age: 67 Year
  Sex: Female

DRUGS (5)
  1. FLAGYL [Suspect]
     Route: 042
     Dates: start: 20060517, end: 20060623
  2. TARGOCID [Suspect]
     Route: 042
     Dates: start: 20060609, end: 20060623
  3. AZACTAM [Suspect]
     Route: 042
     Dates: start: 20060517, end: 20060623
  4. TIENAM [Suspect]
     Route: 042
     Dates: start: 20060623, end: 20060627
  5. VANCOMYCIN [Suspect]
     Route: 042
     Dates: start: 20060517, end: 20060609

REACTIONS (2)
  - LEUKOPENIA [None]
  - NEUTROPENIA [None]
